FAERS Safety Report 19898914 (Version 1)
Quarter: 2021Q3

REPORT INFORMATION
  Report Type: Spontaneous
  Country: GB (occurrence: GB)
  Receive Date: 20210929
  Receipt Date: 20210929
  Transmission Date: 20211014
  Serious: Yes (Death)
  Sender: FDA-Public Use
  Company Number: GB-PFIZER INC-202101240615

PATIENT
  Age: 63 Year
  Sex: Female

DRUGS (4)
  1. NEORAL [Concomitant]
     Active Substance: CYCLOSPORINE
  2. NEORAL [Concomitant]
     Active Substance: CYCLOSPORINE
  3. RAPAMUNE [Suspect]
     Active Substance: SIROLIMUS
     Dosage: UNK
  4. PREDNISOLONE [PREDNISOLONE ACETATE] [Concomitant]
     Active Substance: PREDNISOLONE ACETATE
     Dosage: N/A

REACTIONS (1)
  - Death [Fatal]
